FAERS Safety Report 8488661-1 (Version None)
Quarter: 2012Q3

REPORT INFORMATION
  Report Type: 
  Country: None (occurrence: None)
  Receive Date: 20120705
  Receipt Date: 20120702
  Transmission Date: 20120928
  Serious: Yes (Hospitalization, Other)
  Sender: FDA-Public Use
  Company Number: US-PFIZER INC-2012105177

PATIENT
  Sex: Male

DRUGS (1)
  1. CHANTIX [Suspect]
     Indication: SMOKING CESSATION THERAPY
     Dosage: 0.5 MG AND 1 MG CONTINUING PACKS
     Route: 048
     Dates: start: 20091111, end: 20100201

REACTIONS (6)
  - SUICIDE ATTEMPT [None]
  - DEPRESSION [None]
  - MOOD SWINGS [None]
  - SUICIDAL BEHAVIOUR [None]
  - INTENTIONAL OVERDOSE [None]
  - AGGRESSION [None]
